FAERS Safety Report 20120923 (Version 1)
Quarter: 2021Q4

REPORT INFORMATION
  Report Type: Spontaneous
  Country: JP (occurrence: JP)
  Receive Date: 20211127
  Receipt Date: 20211127
  Transmission Date: 20220304
  Serious: Yes (Disabling)
  Sender: FDA-Public Use
  Company Number: JP-CHUGAI-2021028701

PATIENT
  Age: 69 Year
  Sex: Male

DRUGS (2)
  1. TECENTRIQ [Suspect]
     Active Substance: ATEZOLIZUMAB
     Indication: Product used for unknown indication
     Route: 041
  2. AVASTIN [Suspect]
     Active Substance: BEVACIZUMAB
     Indication: Product used for unknown indication
     Route: 041

REACTIONS (1)
  - Hypopituitarism [Recovered/Resolved]

NARRATIVE: CASE EVENT DATE: 20210618
